FAERS Safety Report 4283367-7 (Version None)
Quarter: 2004Q1

REPORT INFORMATION
  Report Type: 
  Country: None (occurrence: None)
  Receive Date: 20040202
  Receipt Date: 20040112
  Transmission Date: 20041129
  Serious: Yes (Other)
  Sender: FDA-Public Use
  Company Number: PHHO2004CA00806

PATIENT
  Age: 38 Year
  Sex: Female

DRUGS (2)
  1. ZELNORM [Suspect]
     Indication: IRRITABLE BOWEL SYNDROME
     Dosage: 6 MG, QD
     Route: 048
     Dates: start: 20031204, end: 20031207
  2. SYNTHROID [Concomitant]
     Dosage: 100 UG, UNK

REACTIONS (1)
  - DIARRHOEA [None]
